FAERS Safety Report 4650676-9 (Version None)
Quarter: 2005Q2

REPORT INFORMATION
  Report Type: 
  Country: None (occurrence: None)
  Receive Date: 20050429
  Receipt Date: 20050429
  Transmission Date: 20051028
  Serious: Yes (Other)
  Sender: FDA-Public Use
  Company Number: None

PATIENT
  Age: 24 Year
  Sex: Female

DRUGS (8)
  1. ACTONEL [Suspect]
     Indication: OSTEOPOROSIS
     Dosage: 35MG   WEEKLY  ORAL
     Route: 048
     Dates: start: 20050408, end: 20050422
  2. IBUPROFEN [Suspect]
     Indication: PREMENSTRUAL SYNDROME
     Dosage: 600MG   TID   ORAL
     Route: 048
     Dates: start: 20050310, end: 20050422
  3. CALCIUM W/ VITAMIN D [Concomitant]
  4. CARNITINE [Concomitant]
  5. TRILEPTAL [Concomitant]
  6. DEPAKOTE ER [Concomitant]
  7. DECLOMYCIN [Concomitant]
  8. MULTIVITAMIN -NO MINERALS-, [Concomitant]

REACTIONS (1)
  - GASTRIC ULCER [None]
